FAERS Safety Report 21585860 (Version 2)
Quarter: 2023Q1

REPORT INFORMATION
  Report Type: Spontaneous
  Country: US (occurrence: US)
  Receive Date: 20221111
  Receipt Date: 20230126
  Transmission Date: 20230417
  Serious: Yes (Life-Threatening, Other)
  Sender: FDA-Public Use
  Company Number: US-ALLERGAN-2236922US

PATIENT
  Sex: Female
  Weight: 81.633 kg

DRUGS (48)
  1. VRAYLAR [Suspect]
     Active Substance: CARIPRAZINE
     Indication: Bipolar disorder
     Dosage: 1.5 MG, QD
     Route: 048
     Dates: start: 20220826, end: 20220831
  2. SEROQUEL [Concomitant]
     Active Substance: QUETIAPINE FUMARATE
     Dosage: 1/2 AT BEDTIME
  3. ARIPIPRAZOLE [Concomitant]
     Active Substance: ARIPIPRAZOLE
     Dosage: 5 MG
     Dates: start: 202107
  4. LEVOTHYROXINE [Concomitant]
     Active Substance: LEVOTHYROXINE
     Indication: Hypothyroidism
     Dosage: 75 ?G
  5. LEVOTHYROXINE [Concomitant]
     Active Substance: LEVOTHYROXINE
     Dosage: 100 MG, QD
     Route: 048
  6. VITAMIN D NOS [Concomitant]
     Active Substance: VITAMIN D NOS
     Dosage: TAKE 2 DAILY
  7. LAMICTAL [Concomitant]
     Active Substance: LAMOTRIGINE
     Dosage: 25 MG, QD
  8. OXITRIPTAN [Concomitant]
     Active Substance: OXITRIPTAN
     Indication: Sleep disorder
     Dosage: AT NIGHT
  9. OXITRIPTAN [Concomitant]
     Active Substance: OXITRIPTAN
     Indication: Anxiety
     Dosage: UNK, BID
  10. OXITRIPTAN [Concomitant]
     Active Substance: OXITRIPTAN
     Dosage: 1-2 TIMES DAILY
  11. RISPERIDONE [Concomitant]
     Active Substance: RISPERIDONE
     Indication: Sleep disorder
     Dosage: 1 TABLET AS NEEDED AT BEDTIME
  12. RISPERIDONE [Concomitant]
     Active Substance: RISPERIDONE
     Dosage: 0.5 MG, QHS
  13. PROPRANOLOL [Concomitant]
     Active Substance: PROPRANOLOL HYDROCHLORIDE
     Dosage: 2 TABLET BY MOUTH AT BEDTIME AND ONE IN THE MORNING
  14. PROPRANOLOL [Concomitant]
     Active Substance: PROPRANOLOL HYDROCHLORIDE
     Dosage: 1 TABLET EVERYDAY AT BEDTIME
  15. PROPRANOLOL [Concomitant]
     Active Substance: PROPRANOLOL HYDROCHLORIDE
     Dosage: 20 MG, BID
  16. LYSINE [Concomitant]
     Active Substance: LYSINE
     Indication: Anosmia
  17. VITAMIN B COMPLEX [Concomitant]
     Active Substance: CYANOCOBALAMIN\DEXPANTHENOL\NIACINAMIDE\PYRIDOXINE HYDROCHLORIDE\RIBOFLAVIN 5^-PHOSPHATE SODIUM\THIA
     Indication: Anxiety
  18. VITAMIN B COMPLEX [Concomitant]
     Active Substance: CYANOCOBALAMIN\DEXPANTHENOL\NIACINAMIDE\PYRIDOXINE HYDROCHLORIDE\RIBOFLAVIN 5^-PHOSPHATE SODIUM\THIA
     Indication: Nervous system disorder
  19. VITAMIN B COMPLEX [Concomitant]
     Active Substance: CYANOCOBALAMIN\DEXPANTHENOL\NIACINAMIDE\PYRIDOXINE HYDROCHLORIDE\RIBOFLAVIN 5^-PHOSPHATE SODIUM\THIA
     Indication: Fatigue
  20. ESTRADIOL [Concomitant]
     Active Substance: ESTRADIOL
     Dosage: 1 MG, QD
  21. SYNTHROID [Concomitant]
     Active Substance: LEVOTHYROXINE SODIUM
     Indication: Hyperthyroidism
     Dosage: 88 ?G
  22. SYNTHROID [Concomitant]
     Active Substance: LEVOTHYROXINE SODIUM
     Dosage: STOP 122 ?G
  23. CORTISOL [HYDROCORTISONE] Support Supplement [Concomitant]
  24. FISH OIL [Concomitant]
     Active Substance: FISH OIL
     Indication: Nervous system disorder
     Dosage: 2-3 CAPSULES A DAY
  25. FISH OIL [Concomitant]
     Active Substance: FISH OIL
     Indication: Hyperlipidaemia
  26. ZYRTEC [Concomitant]
     Active Substance: CETIRIZINE HYDROCHLORIDE
  27. HYDROXYZINE [Concomitant]
     Active Substance: HYDROXYZINE HYDROCHLORIDE
     Indication: Anxiety
     Dosage: EVERY 4-6 HOURS
  28. HYDROXYZINE [Concomitant]
     Active Substance: HYDROXYZINE HYDROCHLORIDE
     Dosage: 25 MG, TID, AS NEEDED
  29. BUSPAR [Concomitant]
     Active Substance: BUSPIRONE HYDROCHLORIDE
     Dosage: 10 MG
  30. BUSPAR [Concomitant]
     Active Substance: BUSPIRONE HYDROCHLORIDE
     Dosage: 7.5 MG, BID
  31. BUSPAR [Concomitant]
     Active Substance: BUSPIRONE HYDROCHLORIDE
     Dosage: 5 MG, BID
  32. DIPHENHYDRAMINE [Concomitant]
     Active Substance: DIPHENHYDRAMINE
     Dosage: 50 MG, SINGLE
     Route: 030
  33. PROCHLORPERAZINE EDISYLATE [Concomitant]
     Active Substance: PROCHLORPERAZINE EDISYLATE
     Dosage: 10 MG, SINGLE
     Route: 030
  34. ATIVAN [Concomitant]
     Active Substance: LORAZEPAM
     Dosage: 0.5 MG
  35. ATIVAN [Concomitant]
     Active Substance: LORAZEPAM
     Dosage: 0.5 MG X 2 TIMES A DAY AS NEEDED
  36. EFFEXOR [Concomitant]
     Active Substance: VENLAFAXINE HYDROCHLORIDE
     Dosage: 37.5 MG, QAM
  37. KETOROLAC [Concomitant]
     Active Substance: KETOROLAC TROMETHAMINE
     Dosage: 2 ML
     Route: 030
  38. LEXAPRO [Concomitant]
     Active Substance: ESCITALOPRAM OXALATE
     Dosage: 10 MG, QD
  39. LEXAPRO [Concomitant]
     Active Substance: ESCITALOPRAM OXALATE
     Dosage: 20 MG, QD
  40. LEXAPRO [Concomitant]
     Active Substance: ESCITALOPRAM OXALATE
     Dosage: 10 MG, QOD
  41. ZOLOFT [Concomitant]
     Active Substance: SERTRALINE HYDROCHLORIDE
  42. LATUDA [Concomitant]
     Active Substance: LURASIDONE HYDROCHLORIDE
  43. PROPRANOLOL [PROPRANOLOL HYDROCHLORIDE] XL [Concomitant]
     Dosage: 60 MG, QAM
  44. PROPRANOLOL HCL ER 60mg Cap [Concomitant]
     Dosage: 60 MG, QD
  45. TRAZODONE [Concomitant]
     Active Substance: TRAZODONE HYDROCHLORIDE
     Dosage: 50 MG, QHS
  46. MELATONIN [Concomitant]
     Active Substance: MELATONIN
     Dosage: 3 MG
  47. MELATONIN [Concomitant]
     Active Substance: MELATONIN
     Dosage: 10 MG
  48. XANAX [Concomitant]
     Active Substance: ALPRAZOLAM
     Dosage: 25 MG

REACTIONS (2)
  - Gun shot wound [Recovered/Resolved]
  - Suicide attempt [Unknown]

NARRATIVE: CASE EVENT DATE: 20220831
